FAERS Safety Report 13577604 (Version 1)
Quarter: 2017Q2

REPORT INFORMATION
  Report Type: Spontaneous
  Country: US (occurrence: US)
  Receive Date: 20170524
  Receipt Date: 20170524
  Transmission Date: 20170830
  Serious: No
  Sender: FDA-Public Use
  Company Number: US-MYLANLABS-2017M1006829

PATIENT
  Sex: Female

DRUGS (2)
  1. CLOMIPRAMINE [Suspect]
     Active Substance: CLOMIPRAMINE
     Indication: OBSESSIVE-COMPULSIVE DISORDER
     Dosage: 150 MG, UNK
  2. CLOMIPRAMINE [Suspect]
     Active Substance: CLOMIPRAMINE
     Dosage: 100 MG, UNK

REACTIONS (12)
  - Chest discomfort [Unknown]
  - Swelling face [Unknown]
  - Muscle spasms [Unknown]
  - Respiratory symptom [Unknown]
  - Urine abnormality [Unknown]
  - Nausea [Unknown]
  - Unevaluable event [Unknown]
  - Fluid retention [Unknown]
  - Weight increased [Unknown]
  - Chromaturia [None]
  - Cough [Unknown]
  - Gait disturbance [Unknown]
